FAERS Safety Report 5816568-4 (Version None)
Quarter: 2008Q3

REPORT INFORMATION
  Report Type: 
  Country: None (occurrence: None)
  Receive Date: 20080721
  Receipt Date: 20080710
  Transmission Date: 20090109
  Serious: Yes (Death, Hospitalization)
  Sender: FDA-Public Use
  Company Number: GB-AVENTIS-200815747GDDC

PATIENT
  Age: 76 Year
  Sex: Male
  Weight: 96.8 kg

DRUGS (8)
  1. TAXOTERE [Suspect]
     Route: 042
     Dates: start: 20080101, end: 20080501
  2. DEXAMETHASONE [Suspect]
     Route: 048
     Dates: start: 20080501, end: 20080601
  3. PREDNISOLONE [Suspect]
     Route: 048
     Dates: start: 20080601
  4. ALLOPURINOL [Concomitant]
     Indication: GOUT
     Route: 048
  5. MILPAR [Concomitant]
     Indication: CONSTIPATION
     Route: 048
     Dates: start: 20080602
  6. MOVICOL                            /01053601/ [Concomitant]
     Indication: CONSTIPATION
     Dosage: DOSE QUANTITY: 1
     Route: 048
     Dates: start: 20080603
  7. TAMSULOSIN HCL [Concomitant]
     Route: 048
     Dates: start: 20070101
  8. SOTALOL HCL [Concomitant]
     Indication: ARRHYTHMIA
     Route: 048
     Dates: start: 20080201

REACTIONS (6)
  - CONSTIPATION [None]
  - FLATULENCE [None]
  - HYPOTENSION [None]
  - INTESTINAL PERFORATION [None]
  - NEUTROPENIC SEPSIS [None]
  - RENAL FAILURE ACUTE [None]
